FAERS Safety Report 17622809 (Version 1)
Quarter: 2020Q2

REPORT INFORMATION
  Report Type: Spontaneous
  Country: US (occurrence: US)
  Receive Date: 20200403
  Receipt Date: 20200403
  Transmission Date: 20200713
  Serious: No
  Sender: FDA-Public Use
  Company Number: US-PFIZER INC-2020135760

PATIENT

DRUGS (2)
  1. ALTACE [Suspect]
     Active Substance: RAMIPRIL
     Dosage: 2.5 UNK, 2X/DAY
  2. ALTACE [Suspect]
     Active Substance: RAMIPRIL
     Dosage: 5 UNK, DAILY

REACTIONS (1)
  - Hypersensitivity [Unknown]
